FAERS Safety Report 11230853 (Version 1)
Quarter: 2015Q2

REPORT INFORMATION
  Report Type: Spontaneous
  Country: US (occurrence: None)
  Receive Date: 20150629
  Receipt Date: 20150629
  Transmission Date: 20150821
  Serious: Yes (Other)
  Sender: FDA-Public Use
  Company Number: None

PATIENT
  Age: 59 Year
  Sex: Female

DRUGS (3)
  1. JERGENS NATURAL GLOW [Suspect]
     Active Substance: OCTINOXATE\OXYBENZONE
     Indication: TANNING
     Dates: start: 20150614, end: 20150623
  2. LEVOTHYROXIN [Concomitant]
     Active Substance: LEVOTHYROXINE
  3. VITAMIN D [Concomitant]
     Active Substance: CHOLECALCIFEROL

REACTIONS (5)
  - Application site paraesthesia [None]
  - Skin tightness [None]
  - Application site warmth [None]
  - Application site vesicles [None]
  - Application site reaction [None]

NARRATIVE: CASE EVENT DATE: 20150614
